FAERS Safety Report 6900069-6 (Version None)
Quarter: 2010Q3

REPORT INFORMATION
  Report Type: 
  Country: None (occurrence: None)
  Receive Date: 20100708
  Receipt Date: 20100319
  Transmission Date: 20110219
  Serious: Yes (Other)
  Sender: FDA-Public Use
  Company Number: 2010036153

PATIENT
  Sex: Male

DRUGS (1)
  1. CHANTIX [Suspect]
     Dosage: 0.5 MG, 1X/DAY, ORAL; 1 MG, 2X/DAY, ORAL
     Route: 048

REACTIONS (1)
  - HALLUCINATION, AUDITORY [None]
